FAERS Safety Report 4486118-6 (Version None)
Quarter: 2004Q4

REPORT INFORMATION
  Report Type: 
  Country: None (occurrence: None)
  Receive Date: 20041026
  Receipt Date: 20041021
  Transmission Date: 20050328
  Serious: Yes (Other)
  Sender: FDA-Public Use
  Company Number: DK-MERCK-0410DNK00016

PATIENT
  Age: 56 Year
  Sex: Male

DRUGS (2)
  1. VIOXX [Suspect]
     Indication: GOUT
     Route: 048
     Dates: start: 20000501, end: 20030401
  2. BENDROFLUMETHIAZIDE AND POTASSIUM CHLORIDE [Concomitant]
     Route: 065

REACTIONS (1)
  - CEREBRAL THROMBOSIS [None]
